FAERS Safety Report 9308097 (Version 2)
Quarter: 2013Q2

REPORT INFORMATION
  Report Type: Report from Study
  Country: CA (occurrence: CA)
  Receive Date: 20130524
  Receipt Date: 20130607
  Transmission Date: 20140414
  Serious: Yes (Hospitalization, Other)
  Sender: FDA-Public Use
  Company Number: CA-ABBOTT-13P-028-1093012-00

PATIENT
  Sex: Male
  Weight: 46.76 kg

DRUGS (21)
  1. KALETRA 200/50 [Suspect]
     Indication: ANTIRETROVIRAL THERAPY
     Dosage: 200 MG/50 MG
     Route: 048
  2. KALETRA 200/50 [Suspect]
  3. XATRAL [Concomitant]
     Indication: PROSTATIC DISORDER
     Route: 048
  4. FLUCONAZOLE [Concomitant]
     Indication: INFECTION
     Route: 048
  5. DOMPERIDONE [Concomitant]
     Indication: PRODUCT USED FOR UNKNOWN INDICATION
     Route: 048
  6. PANTOPRAZOLE [Concomitant]
     Indication: GASTRIC DISORDER
     Route: 048
  7. ROCALTROL [Concomitant]
     Indication: PRODUCT USED FOR UNKNOWN INDICATION
     Dosage: ON  MON-WED-FRI
     Route: 048
  8. PREGABALIN [Concomitant]
     Indication: PRODUCT USED FOR UNKNOWN INDICATION
     Route: 048
  9. METOPROLOL [Concomitant]
     Indication: HYPERTENSION
     Route: 048
  10. AAS PROTECT [Concomitant]
     Indication: PRODUCT USED FOR UNKNOWN INDICATION
     Route: 048
  11. PRO FENO SUPER [Concomitant]
     Indication: PRODUCT USED FOR UNKNOWN INDICATION
     Route: 048
  12. LASIX [Concomitant]
     Indication: PRODUCT USED FOR UNKNOWN INDICATION
  13. ZERIT [Concomitant]
     Indication: PRODUCT USED FOR UNKNOWN INDICATION
     Dates: start: 2005, end: 20120606
  14. VIDEX EC [Concomitant]
     Indication: PRODUCT USED FOR UNKNOWN INDICATION
     Dates: start: 2005, end: 20120606
  15. LIPIDIL [Concomitant]
     Indication: PRODUCT USED FOR UNKNOWN INDICATION
  16. PREVACID [Concomitant]
     Indication: PRODUCT USED FOR UNKNOWN INDICATION
  17. NEXIUM [Concomitant]
     Indication: PRODUCT USED FOR UNKNOWN INDICATION
  18. VALTREX [Concomitant]
     Indication: PRODUCT USED FOR UNKNOWN INDICATION
  19. LYRICA [Concomitant]
     Indication: PRODUCT USED FOR UNKNOWN INDICATION
  20. ATARAX [Concomitant]
     Indication: PRODUCT USED FOR UNKNOWN INDICATION
     Dosage: HS PRN
  21. NORVASC [Concomitant]
     Indication: PRODUCT USED FOR UNKNOWN INDICATION

REACTIONS (16)
  - Presyncope [Unknown]
  - Pancreatitis acute [Unknown]
  - Abdominal pain [Unknown]
  - Renal disorder [Recovering/Resolving]
  - Pulmonary oedema [Recovering/Resolving]
  - Fluid retention [Unknown]
  - Rib fracture [Recovered/Resolved]
  - Cough [Recovered/Resolved]
  - Mobility decreased [Recovered/Resolved]
  - Weight decreased [Unknown]
  - Oedema peripheral [Unknown]
  - Dyspnoea [Not Recovered/Not Resolved]
  - Muscular weakness [Not Recovered/Not Resolved]
  - Abdominal pain upper [Recovered/Resolved]
  - Pancreatitis chronic [Unknown]
  - Atrial fibrillation [Unknown]
